FAERS Safety Report 17902374 (Version 2)
Quarter: 2020Q2

REPORT INFORMATION
  Report Type: Spontaneous
  Country: US (occurrence: US)
  Receive Date: 20200617
  Receipt Date: 20200618
  Transmission Date: 20200714
  Serious: Yes (Other)
  Sender: FDA-Public Use
  Company Number: US-ROCHE-2622877

PATIENT
  Age: 54 Year
  Sex: Female

DRUGS (2)
  1. TAXOTERE [Concomitant]
     Active Substance: DOCETAXEL
  2. HERCEPTIN [Suspect]
     Active Substance: TRASTUZUMAB
     Indication: BREAST CANCER
     Dosage: EVERY 3 WEEKS, 4 CYCLES GIVEN
     Route: 042

REACTIONS (1)
  - Brain neoplasm malignant [Unknown]
